FAERS Safety Report 16479680 (Version 2)
Quarter: 2019Q3

REPORT INFORMATION
  Report Type: Spontaneous
  Country: PL (occurrence: PL)
  Receive Date: 20190626
  Receipt Date: 20190703
  Transmission Date: 20191004
  Serious: Yes (Hospitalization, Other)
  Sender: FDA-Public Use
  Company Number: PHHY2019PL142233

PATIENT
  Age: 71 Year
  Sex: Male

DRUGS (2)
  1. PAZOPANIB [Suspect]
     Active Substance: PAZOPANIB
     Dosage: 400 MG, QD
     Route: 065
  2. PAZOPANIB [Suspect]
     Active Substance: PAZOPANIB
     Indication: RENAL CELL CARCINOMA
     Dosage: 600 MG, QD
     Route: 065
     Dates: start: 201507

REACTIONS (11)
  - Weight decreased [Unknown]
  - Rash [Unknown]
  - Diarrhoea [Recovering/Resolving]
  - Malignant neoplasm progression [Unknown]
  - Ischaemic stroke [Unknown]
  - Metastases to lymph nodes [Unknown]
  - Blood pressure fluctuation [Unknown]
  - Metastases to oesophagus [Unknown]
  - Decreased appetite [Unknown]
  - Acute coronary syndrome [Unknown]
  - Asthenia [Recovering/Resolving]
